FAERS Safety Report 7428960-5 (Version None)
Quarter: 2011Q2

REPORT INFORMATION
  Report Type: 
  Country: None (occurrence: None)
  Receive Date: 20110421
  Receipt Date: 20110411
  Transmission Date: 20111010
  Serious: Yes (Death)
  Sender: FDA-Public Use
  Company Number: US-JNJFOC-20101002281

PATIENT
  Sex: Female
  Weight: 77.11 kg

DRUGS (8)
  1. VIVELLE-DOT [Concomitant]
  2. TRAMADOL HCL [Concomitant]
  3. XANAX [Concomitant]
  4. METHADONE [Concomitant]
     Route: 065
  5. PROPOXYPHENE HYDROCHLORIDE [Concomitant]
     Route: 065
  6. ACETAMINOPHEN [Concomitant]
     Route: 065
  7. DURAGESIC [Suspect]
     Indication: PAIN
     Route: 062
  8. SOMA [Concomitant]

REACTIONS (3)
  - DRUG DOSE OMISSION [None]
  - DRUG INEFFECTIVE [None]
  - TOXICITY TO VARIOUS AGENTS [None]
